FAERS Safety Report 6773576-7 (Version None)
Quarter: 2010Q2

REPORT INFORMATION
  Report Type: 
  Country: None (occurrence: None)
  Receive Date: 20100611
  Receipt Date: 20100607
  Transmission Date: 20101027
  Serious: Yes (Hospitalization)
  Sender: FDA-Public Use
  Company Number: 2010SP018620

PATIENT
  Age: 18 Year
  Sex: Male

DRUGS (2)
  1. TEMOZOLOMIDE [Suspect]
     Indication: MEDULLOBLASTOMA RECURRENT
     Dosage: 180 MG/M2; QD; PO
     Route: 048
     Dates: start: 20091207, end: 20091211
  2. ABT-888 [Suspect]
     Indication: MEDULLOBLASTOMA RECURRENT
     Dosage: 15 MG/M2; BID; PO
     Route: 048
     Dates: start: 20091207, end: 20091211

REACTIONS (15)
  - ANAEMIA [None]
  - DYSPHAGIA [None]
  - HYPOPHOSPHATAEMIA [None]
  - LEUKOPENIA [None]
  - LOCAL SWELLING [None]
  - LYMPHADENITIS [None]
  - LYMPHOPENIA [None]
  - MASTICATION DISORDER [None]
  - NEUTROPENIA [None]
  - OROPHARYNGEAL PAIN [None]
  - PETECHIAE [None]
  - PURPURA [None]
  - SIALOADENITIS [None]
  - THROMBOCYTOPENIA [None]
  - WHITE BLOOD CELL COUNT DECREASED [None]
